FAERS Safety Report 18719657 (Version 1)
Quarter: 2021Q1

REPORT INFORMATION
  Report Type: Spontaneous
  Country: US (occurrence: US)
  Receive Date: 20210109
  Receipt Date: 20210109
  Transmission Date: 20210419
  Serious: No
  Sender: FDA-Public Use
  Company Number: US-ASTRAZENECA-2020SF69192

PATIENT
  Age: 8989 Day
  Sex: Male
  Weight: 112 kg

DRUGS (2)
  1. KOSELUGO [Suspect]
     Active Substance: SELUMETINIB
     Indication: NERVOUS SYSTEM NEOPLASM BENIGN
     Route: 048
     Dates: start: 20200709, end: 20201215
  2. KOSELUGO [Suspect]
     Active Substance: SELUMETINIB
     Indication: NERVOUS SYSTEM NEOPLASM BENIGN
     Route: 048

REACTIONS (1)
  - Pneumonia [Unknown]

NARRATIVE: CASE EVENT DATE: 20201215
